FAERS Safety Report 25892977 (Version 1)
Quarter: 2025Q4

REPORT INFORMATION
  Report Type: Spontaneous
  Country: EU (occurrence: EU)
  Receive Date: 20251008
  Receipt Date: 20251008
  Transmission Date: 20260118
  Serious: Yes (Other)
  Sender: BAXTER
  Company Number: EU-MLMSERVICE-20250923-PI650461-00101-1

PATIENT
  Age: 38 Year
  Sex: Female

DRUGS (12)
  1. CYCLOPHOSPHAMIDE [Suspect]
     Active Substance: CYCLOPHOSPHAMIDE
     Indication: Plasma cell myeloma
     Dosage: UNK (FROM THIRD CYCLE, CHEMOTHERAPY WAS ESCALATED TO KD-PACE PROTOCOL) TWO CYCLES
     Route: 065
     Dates: start: 2022
  2. CYCLOPHOSPHAMIDE [Suspect]
     Active Substance: CYCLOPHOSPHAMIDE
     Indication: Plasma cell myeloma
  3. DOXORUBICIN [Suspect]
     Active Substance: DOXORUBICIN
     Indication: Plasma cell myeloma
     Dosage: UNK (FROM THIRD CYCLE, CHEMOTHERAPY WAS ESCALATED TO KD-PACE PROTOCOL) TWO CYCLES
     Route: 065
     Dates: start: 2022
  4. DOXORUBICIN [Suspect]
     Active Substance: DOXORUBICIN
     Indication: Plasma cell myeloma
  5. CARFILZOMIB [Suspect]
     Active Substance: CARFILZOMIB
     Indication: Plasma cell myeloma
     Dosage: UNK (FROM THIRD CYCLE, CHEMOTHERAPY WAS ESCALATED TO KD-PACE PROTOCOL) TWO CYCLES
     Route: 065
     Dates: start: 2022
  6. CARFILZOMIB [Suspect]
     Active Substance: CARFILZOMIB
     Indication: Plasma cell myeloma
  7. DEXAMETHASONE [Suspect]
     Active Substance: DEXAMETHASONE
     Indication: Plasma cell myeloma
     Dosage: UNK (FROM THIRD CYCLE, CHEMOTHERAPY WAS ESCALATED TO KD-PACE PROTOCOL) TWO CYCLES
     Route: 065
     Dates: start: 2022
  8. DEXAMETHASONE [Suspect]
     Active Substance: DEXAMETHASONE
     Indication: Plasma cell myeloma
  9. CISPLATIN [Suspect]
     Active Substance: CISPLATIN
     Indication: Plasma cell myeloma
     Dosage: UNK (FROM THIRD CYCLE, CHEMOTHERAPY WAS ESCALATED TO KD-PACE PROTOCOL) TWO CYCLES
     Route: 065
     Dates: start: 2022
  10. CISPLATIN [Suspect]
     Active Substance: CISPLATIN
     Indication: Plasma cell myeloma
  11. ETOPOSIDE [Suspect]
     Active Substance: ETOPOSIDE
     Indication: Plasma cell myeloma
     Dosage: UNK (FROM THIRD CYCLE, CHEMOTHERAPY WAS ESCALATED TO KD-PACE PROTOCOL) TWO CYCLES
     Route: 065
     Dates: start: 2022
  12. ETOPOSIDE [Suspect]
     Active Substance: ETOPOSIDE
     Indication: Plasma cell myeloma

REACTIONS (4)
  - COVID-19 [Unknown]
  - Thrombocytopenia [Unknown]
  - Nausea [Unknown]
  - Anaemia [Unknown]

NARRATIVE: CASE EVENT DATE: 20220101
